FAERS Safety Report 11200447 (Version 1)
Quarter: 2015Q2

REPORT INFORMATION
  Report Type: Spontaneous
  Country: IT (occurrence: IT)
  Receive Date: 20150618
  Receipt Date: 20150618
  Transmission Date: 20150821
  Serious: Yes (Other)
  Sender: FDA-Public Use
  Company Number: IT-HOSPIRA-2680759

PATIENT
  Age: 47 Year
  Sex: Male
  Weight: 60 kg

DRUGS (12)
  1. FLUOROURACIL. [Suspect]
     Active Substance: FLUOROURACIL
  2. FLUOROURACIL. [Suspect]
     Active Substance: FLUOROURACIL
     Indication: OESOPHAGEAL CANCER METASTATIC
     Route: 042
     Dates: start: 20120308, end: 20120614
  3. DEURSIL [Concomitant]
     Active Substance: URSODIOL
     Indication: PRODUCT USED FOR UNKNOWN INDICATION
     Route: 048
  4. OXALIPLATIN. [Suspect]
     Active Substance: OXALIPLATIN
  5. LANSOPRAZOLE. [Concomitant]
     Active Substance: LANSOPRAZOLE
     Indication: PRODUCT USED FOR UNKNOWN INDICATION
     Route: 048
  6. OXALIPLATIN. [Suspect]
     Active Substance: OXALIPLATIN
     Indication: OESOPHAGEAL CANCER METASTATIC
     Route: 042
     Dates: start: 20120308, end: 20120614
  7. OXALIPLATIN. [Suspect]
     Active Substance: OXALIPLATIN
  8. KONAKION [Concomitant]
     Active Substance: PHYTONADIONE
     Indication: PRODUCT USED FOR UNKNOWN INDICATION
  9. FOLINIC ACID [Concomitant]
     Active Substance: LEUCOVORIN
     Indication: PRODUCT USED FOR UNKNOWN INDICATION
     Route: 042
     Dates: start: 20120308, end: 20120614
  10. FLUOROURACIL. [Suspect]
     Active Substance: FLUOROURACIL
  11. OXALIPLATIN. [Suspect]
     Active Substance: OXALIPLATIN
  12. FLUOROURACIL. [Suspect]
     Active Substance: FLUOROURACIL

REACTIONS (5)
  - Pyrexia [Recovering/Resolving]
  - Feeling hot [Recovering/Resolving]
  - Chills [Recovering/Resolving]
  - Flushing [Recovering/Resolving]
  - Bone pain [Recovering/Resolving]

NARRATIVE: CASE EVENT DATE: 20120605
